FAERS Safety Report 4561224-6 (Version None)
Quarter: 2005Q1

REPORT INFORMATION
  Report Type: 
  Country: None (occurrence: None)
  Receive Date: 20050121
  Receipt Date: 20050117
  Transmission Date: 20050727
  Serious: Yes (Hospitalization, Disabling)
  Sender: FDA-Public Use
  Company Number: J081-002-001850

PATIENT
  Age: 42 Year
  Sex: Female

DRUGS (8)
  1. ARICEPT [Suspect]
     Indication: DEMENTIA ALZHEIMER'S TYPE
     Dosage: 5 MG, 1 IN 1 D, ORAL
     Route: 048
     Dates: start: 20040710, end: 20040826
  2. ALDACTONE [Suspect]
     Indication: HYPERTENSION
     Dosage: 50 MG, 1 IN 1 D, ORAL
     Route: 048
     Dates: start: 20040715, end: 20040826
  3. MINIPRESS [Suspect]
     Indication: HYPERTENSION
     Dosage: 8 MG, 1 IN 1 D, ORAL
     Route: 048
     Dates: start: 20040601, end: 20040826
  4. ADECUT (DELAPRIL HYDROCHLORIDE) [Suspect]
     Indication: HYPERTENSION
     Dosage: 30 MG, 1 IN 1 D, ORAL
     Route: 048
     Dates: start: 20040717, end: 20040826
  5. BLOPRESS (CANDESARTAN CILEXETIL) [Suspect]
     Indication: HYPERTENSION
     Dosage: 4 MG, 1 IN 1 D, ORAL
     Route: 048
     Dates: start: 20040710, end: 20040826
  6. TIAPRIDE HYDROCHLORIDE (TIAPRIDE) [Concomitant]
  7. PANTOSIN (PANTETHINE) [Concomitant]
  8. 6 [Concomitant]

REACTIONS (7)
  - BRADYCARDIA [None]
  - DRUG INTERACTION [None]
  - HYPOTHERMIA [None]
  - HYPOXIA [None]
  - NERVOUS SYSTEM DISORDER [None]
  - NEUROLEPTIC MALIGNANT SYNDROME [None]
  - SHOCK [None]
